FAERS Safety Report 17308067 (Version 1)
Quarter: 2020Q1

REPORT INFORMATION
  Report Type: Spontaneous
  Country: US (occurrence: US)
  Receive Date: 20200122
  Receipt Date: 20200122
  Transmission Date: 20200409
  Serious: Yes (Life-Threatening, Hospitalization, Disabling)
  Sender: FDA-Public Use
  Company Number: None

PATIENT
  Age: 39 Year
  Sex: Female
  Weight: 67.5 kg

DRUGS (3)
  1. COMPAZINE [Suspect]
     Active Substance: PROCHLORPERAZINE MALEATE
     Indication: PRODUCT USED FOR UNKNOWN INDICATION
  2. METHYLFOLATE [Concomitant]
     Active Substance: LEVOMEFOLATE CALCIUM
  3. PROTONIX L [Concomitant]

REACTIONS (6)
  - Reduced facial expression [None]
  - Tremor [None]
  - Upper limb fracture [None]
  - Feeling abnormal [None]
  - Gait disturbance [None]
  - Disorientation [None]

NARRATIVE: CASE EVENT DATE: 20161016
